FAERS Safety Report 18443847 (Version 4)
Quarter: 2021Q3

REPORT INFORMATION
  Report Type: Spontaneous
  Country: US (occurrence: US)
  Receive Date: 20201030
  Receipt Date: 20210819
  Transmission Date: 20211014
  Serious: No
  Sender: FDA-Public Use
  Company Number: US-AKCEA THERAPEUTICS-2020IS001304

PATIENT
  Age: 65 Year
  Sex: Female
  Weight: 56.32 kg

DRUGS (4)
  1. DIFLUNISAL. [Concomitant]
     Active Substance: DIFLUNISAL
     Route: 065
  2. CARVEDILOL. [Concomitant]
     Active Substance: CARVEDILOL
     Route: 065
  3. TEGSEDI [Suspect]
     Active Substance: INOTERSEN SODIUM
     Indication: HEREDITARY NEUROPATHIC AMYLOIDOSIS
     Route: 058
     Dates: start: 20200718
  4. ISSD (INTEGRATED SYRINGE SAFETY DEVICE) [Suspect]
     Active Substance: DEVICE

REACTIONS (23)
  - Chills [Not Recovered/Not Resolved]
  - Back pain [Unknown]
  - Nitrite urine present [Not Recovered/Not Resolved]
  - Influenza like illness [Unknown]
  - Malaise [Unknown]
  - Somnolence [Not Recovered/Not Resolved]
  - Diarrhoea [Not Recovered/Not Resolved]
  - Urine abnormality [Unknown]
  - Urine protein/creatinine ratio increased [Unknown]
  - Creatinine urine abnormal [Unknown]
  - Pain [Unknown]
  - Headache [Unknown]
  - Injection site erythema [Not Recovered/Not Resolved]
  - Fatigue [Unknown]
  - Pain in extremity [Unknown]
  - Blood test abnormal [Unknown]
  - Injection site hypersensitivity [Unknown]
  - Influenza like illness [Not Recovered/Not Resolved]
  - Renal function test abnormal [Unknown]
  - Injection site swelling [Unknown]
  - Bacterial test positive [Not Recovered/Not Resolved]
  - Rash [Unknown]
  - Proteinuria [Unknown]

NARRATIVE: CASE EVENT DATE: 20200718
